FAERS Safety Report 10005998 (Version 2)
Quarter: 2014Q1

REPORT INFORMATION
  Report Type: Spontaneous
  Country: ZA (occurrence: ZA)
  Receive Date: 20140313
  Receipt Date: 20140313
  Transmission Date: 20141002
  Serious: Yes (Other)
  Sender: FDA-Public Use
  Company Number: ZA-ABBVIE-14P-143-1209847-00

PATIENT
  Age: 49 Year
  Sex: Female

DRUGS (3)
  1. EPILIZINE [Suspect]
     Indication: EPILEPSY
     Route: 048
     Dates: start: 201308
  2. EPILIZINE [Suspect]
     Route: 048
  3. CILIFT [Concomitant]
     Indication: DEPRESSION

REACTIONS (3)
  - Convulsion [Unknown]
  - Malaise [Unknown]
  - Product packaging issue [Unknown]
